FAERS Safety Report 19650773 (Version 1)
Quarter: 2021Q3

REPORT INFORMATION
  Report Type: Other
  Country: CN (occurrence: CN)
  Receive Date: 20210803
  Receipt Date: 20210803
  Transmission Date: 20211014
  Serious: Yes (Other)
  Sender: FDA-Public Use
  Company Number: CN-ROCHE-2877741

PATIENT

DRUGS (3)
  1. PERTUZUMAB. [Suspect]
     Active Substance: PERTUZUMAB
     Indication: HER2 POSITIVE BREAST CANCER
     Dosage: FOR FIRST TIME.
     Route: 042
  2. TRASTUZUMAB EMTANSINE [Suspect]
     Active Substance: ADO-TRASTUZUMAB EMTANSINE
     Indication: HER2 POSITIVE BREAST CANCER
     Route: 065
  3. PERTUZUMAB. [Suspect]
     Active Substance: PERTUZUMAB
     Route: 042

REACTIONS (6)
  - Thrombocytopenia [Unknown]
  - Aspartate aminotransferase increased [Recovered/Resolved]
  - Granulocytopenia [Unknown]
  - Alanine aminotransferase increased [Recovered/Resolved]
  - Fatigue [Unknown]
  - Arthralgia [Unknown]
